FAERS Safety Report 19012619 (Version 1)
Quarter: 2021Q1

REPORT INFORMATION
  Report Type: Spontaneous
  Country: DE (occurrence: DE)
  Receive Date: 20210316
  Receipt Date: 20210316
  Transmission Date: 20210420
  Serious: Yes (Other)
  Sender: FDA-Public Use
  Company Number: DE-PFIZER INC-2021242766

PATIENT
  Age: 31 Year
  Sex: Male
  Weight: 70 kg

DRUGS (3)
  1. LINEZOLID. [Suspect]
     Active Substance: LINEZOLID
     Indication: LOWER LIMB FRACTURE
  2. LINEZOLID. [Suspect]
     Active Substance: LINEZOLID
     Indication: OPEN FRACTURE
  3. LINEZOLID. [Suspect]
     Active Substance: LINEZOLID
     Indication: OSTEITIS
     Dosage: 600 MG, 2X/DAY, PLANNED DISCONTINUATION 18MAR2021
     Route: 048
     Dates: start: 20210208

REACTIONS (7)
  - Heart rate decreased [Recovered/Resolved]
  - Ischaemia [Recovered/Resolved]
  - Palpitations [Recovered/Resolved]
  - Loss of consciousness [Recovered/Resolved]
  - Heart rate irregular [Recovered/Resolved]
  - Off label use [Unknown]
  - Blood pressure increased [Recovered/Resolved]

NARRATIVE: CASE EVENT DATE: 20210225
